FAERS Safety Report 15969096 (Version 2)
Quarter: 2019Q2

REPORT INFORMATION
  Report Type: Report from Study
  Country: AU (occurrence: AU)
  Receive Date: 20190215
  Receipt Date: 20190513
  Transmission Date: 20190711
  Serious: Yes (Other)
  Sender: FDA-Public Use
  Company Number: AU-JNJFOC-20180811589

PATIENT
  Age: 83 Year
  Sex: Female

DRUGS (2)
  1. ACCUPRIL [Concomitant]
     Active Substance: QUINAPRIL HYDROCHLORIDE
     Indication: HYPERTENSION
  2. IMBRUVICA [Suspect]
     Active Substance: IBRUTINIB
     Indication: MANTLE CELL LYMPHOMA
     Route: 048
     Dates: start: 201808

REACTIONS (18)
  - Diarrhoea [Unknown]
  - Sinusitis [Unknown]
  - Post procedural haematuria [Unknown]
  - Haematochezia [Unknown]
  - Tremor [Unknown]
  - Dizziness [Unknown]
  - Dyspnoea [Unknown]
  - Constipation [Unknown]
  - Haemorrhoids [Unknown]
  - Malaise [Unknown]
  - Laryngitis [Not Recovered/Not Resolved]
  - Bladder neoplasm surgery [Unknown]
  - Fatigue [Unknown]
  - Ear infection [Recovering/Resolving]
  - Balance disorder [Unknown]
  - Fluid retention [Unknown]
  - Weight increased [Unknown]
  - Contraindicated product administered [Unknown]

NARRATIVE: CASE EVENT DATE: 201809
